FAERS Safety Report 8619764 (Version 2)
Quarter: 2012Q4

REPORT INFORMATION
  Report Type: 
  Country: IE (occurrence: IE)
  Receive Date: 20120618
  Receipt Date: 20121112
  Transmission Date: 20130627
  Serious: Yes (Death, Hospitalization)
  Sender: FDA-Public Use
  Company Number: IE-JNJFOC-20120606891

PATIENT
  Age: 55 Year
  Sex: Male

DRUGS (10)
  1. STELARA [Suspect]
     Indication: PSORIASIS
     Route: 058
     Dates: start: 201201
  2. STELARA [Suspect]
     Indication: PSORIASIS
     Route: 058
     Dates: start: 201202
  3. ASPIRIN [Concomitant]
     Indication: MYOCARDIAL ISCHAEMIA
     Route: 065
  4. BISOPROLOL [Concomitant]
     Indication: MYOCARDIAL ISCHAEMIA
     Route: 065
  5. COVERSYL [Concomitant]
     Indication: MYOCARDIAL ISCHAEMIA
     Route: 065
  6. LANSOPRAZOLE [Concomitant]
     Indication: GASTROOESOPHAGEAL REFLUX DISEASE
     Route: 065
     Dates: start: 20120510
  7. LACTULOSE [Concomitant]
     Indication: HEPATIC FAILURE
     Route: 065
     Dates: start: 20120510
  8. PABRINEX [Concomitant]
     Indication: HEPATIC FAILURE
     Route: 065
     Dates: start: 20120512
  9. MOVICOL [Concomitant]
     Indication: CONSTIPATION
     Route: 065
     Dates: start: 20120510
  10. PHOSPHATE ENEMA [Concomitant]
     Indication: CONSTIPATION
     Route: 065

REACTIONS (4)
  - Hepatitis alcoholic [Fatal]
  - Hepatic encephalopathy [Unknown]
  - Anaemia [Unknown]
  - Bundle branch block right [Unknown]
